FAERS Safety Report 8617879-X (Version None)
Quarter: 2012Q3

REPORT INFORMATION
  Report Type: 
  Country: None (occurrence: None)
  Receive Date: 20120824
  Receipt Date: 20120308
  Transmission Date: 20120928
  Serious: No
  Sender: FDA-Public Use
  Company Number: US-ASTRAZENECA-2012SE16352

PATIENT
  Age: 77 Year
  Sex: Female
  Weight: 68 kg

DRUGS (7)
  1. ALBUTEROL [Concomitant]
     Indication: HYPERSENSITIVITY
  2. SYMBICORT [Suspect]
     Indication: ASTHMA
     Dosage: 160/4.5 MCG, TWO TIMES A DAY
     Route: 055
  3. CRESTOR [Suspect]
     Indication: BLOOD CHOLESTEROL INCREASED
     Dosage: UNKNOWN DOSE, DAILY
     Route: 048
  4. SYMBICORT [Suspect]
     Indication: CHRONIC OBSTRUCTIVE PULMONARY DISEASE
     Dosage: 160/4.5 MCG, TWO TIMES A DAY
     Route: 055
  5. DIOVAN [Concomitant]
     Indication: HEART RATE ABNORMAL
  6. LISINOPRIL [Concomitant]
  7. NASALIDE [Concomitant]

REACTIONS (2)
  - HYPERSENSITIVITY [None]
  - FORMICATION [None]
